FAERS Safety Report 4703771-X (Version None)
Quarter: 2005Q2

REPORT INFORMATION
  Report Type: 
  Country: None (occurrence: None)
  Receive Date: 20050624
  Receipt Date: 20050624
  Transmission Date: 20051028
  Serious: Yes (Other)
  Sender: FDA-Public Use
  Company Number: None

PATIENT
  Sex: Female
  Weight: 73.4827 kg

DRUGS (2)
  1. METFORMIN 500 MG BID [Suspect]
     Indication: AMENORRHOEA
     Dosage: 500 MG PO
     Route: 048
  2. METFORMIN 500 MG BID [Suspect]
     Indication: BLOOD PROLACTIN INCREASED
     Dosage: 500 MG PO
     Route: 048

REACTIONS (4)
  - DYSGEUSIA [None]
  - DYSPHAGIA [None]
  - PHARMACEUTICAL PRODUCT COMPLAINT [None]
  - TREATMENT NONCOMPLIANCE [None]
